FAERS Safety Report 23492730 (Version 1)
Quarter: 2024Q1

REPORT INFORMATION
  Report Type: Spontaneous
  Country: JP (occurrence: JP)
  Receive Date: 20240207
  Receipt Date: 20240207
  Transmission Date: 20240410
  Serious: Yes (Other)
  Sender: FDA-Public Use
  Company Number: JP-ORPHANEU-2024000733

PATIENT

DRUGS (13)
  1. OSILODROSTAT [Suspect]
     Active Substance: OSILODROSTAT
     Indication: Small cell lung cancer
     Dosage: UNK
  2. OSILODROSTAT [Suspect]
     Active Substance: OSILODROSTAT
     Indication: Cushing^s syndrome
     Dosage: 1 MG DAILY
  3. OSILODROSTAT [Suspect]
     Active Substance: OSILODROSTAT
     Dosage: 20 MG PER DAY (GRADUALLY INCREASED THE DOSE)
  4. OSILODROSTAT [Suspect]
     Active Substance: OSILODROSTAT
     Dosage: DOSE DECREASED
  5. OSILODROSTAT [Suspect]
     Active Substance: OSILODROSTAT
     Dosage: 1 MILLIGRAM DAILY
  6. METYRAPONE [Suspect]
     Active Substance: METYRAPONE
     Indication: Cushing^s syndrome
     Dosage: 500 MILLIGRAM DAILY
  7. METYRAPONE [Suspect]
     Active Substance: METYRAPONE
     Indication: Small cell lung cancer
     Dosage: DOSE GRADUALLY INCREASED, REACHING 2000 MG PER DAY
  8. METYRAPONE [Suspect]
     Active Substance: METYRAPONE
     Dosage: SIX TIMES A DAY
  9. METYRAPONE [Suspect]
     Active Substance: METYRAPONE
     Dosage: DOSE DECREASED
  10. ETOPOSIDE [Suspect]
     Active Substance: ETOPOSIDE
     Indication: Cushing^s syndrome
  11. ETOPOSIDE [Suspect]
     Active Substance: ETOPOSIDE
     Indication: Small cell lung cancer
  12. CARBOPLATIN [Suspect]
     Active Substance: CARBOPLATIN
     Indication: Cushing^s syndrome
  13. CARBOPLATIN [Suspect]
     Active Substance: CARBOPLATIN
     Indication: Small cell lung cancer

REACTIONS (2)
  - Adrenal atrophy [Unknown]
  - Off label use [Recovered/Resolved]
